FAERS Safety Report 10722046 (Version 1)
Quarter: 2015Q1

REPORT INFORMATION
  Report Type: Spontaneous
  Country: HR (occurrence: HR)
  Receive Date: 20150119
  Receipt Date: 20150119
  Transmission Date: 20150721
  Serious: Yes (Hospitalization)
  Sender: FDA-Public Use
  Company Number: HR-PFIZER INC-2015017073

PATIENT
  Age: 61 Year
  Sex: Male

DRUGS (1)
  1. CAMPTO [Suspect]
     Active Substance: IRINOTECAN
     Indication: GASTRIC CANCER
     Dosage: 450 MG, UNK
     Route: 042
     Dates: start: 20131230, end: 20131230

REACTIONS (3)
  - Candida infection [Unknown]
  - Streptococcus test positive [Unknown]
  - Neutropenia [Recovered/Resolved]

NARRATIVE: CASE EVENT DATE: 20140108
